FAERS Safety Report 24256444 (Version 1)
Quarter: 2024Q3

REPORT INFORMATION
  Report Type: Report from Study
  Country: CO (occurrence: None)
  Receive Date: 20240828
  Receipt Date: 20240828
  Transmission Date: 20241016
  Serious: Yes (Hospitalization, Other)
  Sender: ASTRAZENECA
  Company Number: 2019SF66708

PATIENT
  Age: 23134 Day
  Sex: Female

DRUGS (1)
  1. BYDUREON [Suspect]
     Active Substance: EXENATIDE
     Indication: Type 2 diabetes mellitus
     Route: 058
     Dates: start: 20180205

REACTIONS (9)
  - Fall [Recovering/Resolving]
  - Haematoma [Recovering/Resolving]
  - Craniofacial fracture [Recovering/Resolving]
  - Meniscus injury [Unknown]
  - Weight increased [Recovering/Resolving]
  - Asthma [Recovering/Resolving]
  - Sleep apnoea syndrome [Unknown]
  - Hypertension [Recovering/Resolving]
  - Thyroid disorder [Recovering/Resolving]

NARRATIVE: CASE EVENT DATE: 20190927
